FAERS Safety Report 10619368 (Version 1)
Quarter: 2014Q4

REPORT INFORMATION
  Report Type: Spontaneous
  Country: GB (occurrence: GB)
  Receive Date: 20141202
  Receipt Date: 20141202
  Transmission Date: 20150529
  Serious: Yes (Other)
  Sender: FDA-Public Use
  Company Number: GB-TEVA-524058ISR

PATIENT
  Age: 77 Year
  Sex: Male

DRUGS (8)
  1. CIPROFLOXACIN. [Suspect]
     Active Substance: CIPROFLOXACIN
     Indication: ORCHITIS
     Dosage: 1000 MILLIGRAM DAILY;
     Route: 048
     Dates: start: 20141106, end: 20141127
  2. ENOXAPARIN SODIUM. [Concomitant]
     Active Substance: ENOXAPARIN SODIUM
     Dosage: EVERY EVENING, 100MG/1ML
     Route: 058
  3. OMEPRAZOLE. [Concomitant]
     Active Substance: OMEPRAZOLE
     Dosage: 20 MILLIGRAM DAILY; EVERY MORNING
     Route: 048
  4. PARACETAMOL [Concomitant]
     Active Substance: ACETAMINOPHEN
     Dosage: 4 GRAM DAILY;
     Route: 048
     Dates: start: 20141106
  5. FERROUS FUMARATE [Concomitant]
     Active Substance: FERROUS FUMARATE
     Dosage: 630 MILLIGRAM DAILY;
     Route: 048
  6. SIMVASTATIN. [Concomitant]
     Active Substance: SIMVASTATIN
     Dosage: 40 MILLIGRAM DAILY; EVERY EVENING
  7. IVABRADINE [Concomitant]
     Active Substance: IVABRADINE
     Dosage: 5 MILLIGRAM DAILY;
     Route: 048
  8. DOXYCYCLINE. [Suspect]
     Active Substance: DOXYCYCLINE
     Indication: ORCHITIS
     Dosage: 200 MILLIGRAM DAILY;
     Route: 048
     Dates: start: 20141106, end: 20141127

REACTIONS (9)
  - Pruritus [Unknown]
  - Joint stiffness [Unknown]
  - Peripheral swelling [Unknown]
  - Arthralgia [Unknown]
  - Erythema [Unknown]
  - Feeling hot [Unknown]
  - Tendon disorder [Unknown]
  - Inflammation [Unknown]
  - Pain in extremity [Unknown]

NARRATIVE: CASE EVENT DATE: 20141110
